FAERS Safety Report 7399420-5 (Version None)
Quarter: 2011Q2

REPORT INFORMATION
  Report Type: 
  Country: None (occurrence: None)
  Receive Date: 20110407
  Receipt Date: 20110325
  Transmission Date: 20111010
  Serious: Yes (Other)
  Sender: FDA-Public Use
  Company Number: PHHY2011BR25472

PATIENT
  Sex: Male
  Weight: 63 kg

DRUGS (1)
  1. CODATEN [Suspect]
     Indication: INTERVERTEBRAL DISC PROTRUSION
     Dosage: 1 DF, TID (ONE TABLET EVERY 8 HOUR)
     Route: 048
     Dates: start: 20080101

REACTIONS (3)
  - BACK PAIN [None]
  - GAIT DISTURBANCE [None]
  - FEELING ABNORMAL [None]
